FAERS Safety Report 5147680-3 (Version None)
Quarter: 2006Q4

REPORT INFORMATION
  Report Type: 
  Country: None (occurrence: None)
  Receive Date: 20061106
  Receipt Date: 20060811
  Transmission Date: 20070319
  Serious: Yes (Life-Threatening)
  Sender: FDA-Public Use
  Company Number: 149086ISR

PATIENT
  Age: 64 Year
  Sex: Male

DRUGS (2)
  1. METFORMIN [Suspect]
     Dosage: 2 GRAM (1 GRAM, 2 IN D)
     Route: 048
     Dates: start: 20051201
  2. IBUPROFEN [Suspect]
     Route: 061
     Dates: start: 20051201

REACTIONS (6)
  - DIALYSIS [None]
  - DIZZINESS [None]
  - HYPERKALAEMIA [None]
  - INTERMITTENT POSITIVE PRESSURE BREATHING [None]
  - MALAISE [None]
  - RENAL FAILURE ACUTE [None]
